FAERS Safety Report 10161406 (Version 2)
Quarter: 2014Q2

REPORT INFORMATION
  Report Type: Spontaneous
  Country: BE (occurrence: BE)
  Receive Date: 20140509
  Receipt Date: 20140606
  Transmission Date: 20141212
  Serious: Yes (Other)
  Sender: FDA-Public Use
  Company Number: BE-BEH-2014042338

PATIENT
  Sex: Male

DRUGS (1)
  1. HIZENTRA [Suspect]
     Indication: PRODUCT USED FOR UNKNOWN INDICATION
     Dosage: ONGOING; DOSE AND FREQUENCY NOT MENTIONED
     Route: 058
     Dates: start: 20120928

REACTIONS (2)
  - Streptococcal infection [Unknown]
  - Staphylococcal infection [Unknown]
